FAERS Safety Report 7710302-9 (Version None)
Quarter: 2011Q3

REPORT INFORMATION
  Report Type: 
  Country: None (occurrence: None)
  Receive Date: 20110825
  Receipt Date: 20110817
  Transmission Date: 20111222
  Serious: Yes (Hospitalization, Other)
  Sender: FDA-Public Use
  Company Number: US-BAYER-2011-018670

PATIENT
  Age: 25 Year
  Sex: Female
  Weight: 99.773 kg

DRUGS (8)
  1. PROZAC [Concomitant]
     Indication: DEPRESSION
     Dosage: UNK
     Dates: start: 20090201, end: 20090901
  2. ACETAMINOPHEN [Concomitant]
     Indication: PAIN
     Dosage: UNK
     Dates: start: 20090101
  3. CIPROFLOXACIN [Concomitant]
     Dosage: UNK
     Dates: start: 20090201
  4. IBUPROFEN [Concomitant]
     Indication: PAIN
     Dosage: UNK
     Dates: start: 20090101, end: 20090201
  5. DIPHENHYDRAMINE HCL [Concomitant]
     Indication: MULTIPLE ALLERGIES
     Dosage: UNK
     Dates: start: 20090101
  6. YAZ [Suspect]
     Indication: CONTRACEPTION
     Dosage: QD
     Dates: start: 20080305, end: 20090905
  7. VICODIN [Concomitant]
     Indication: PAIN
     Dosage: UNK
     Dates: start: 20090101
  8. AMBIEN [Concomitant]
     Indication: INSOMNIA
     Dosage: UNK
     Dates: start: 20090201

REACTIONS (3)
  - GALLBLADDER DISORDER [None]
  - CHOLECYSTITIS CHRONIC [None]
  - CHOLELITHIASIS [None]
